FAERS Safety Report 23844656 (Version 2)
Quarter: 2024Q2

REPORT INFORMATION
  Report Type: Report from Study
  Country: US (occurrence: US)
  Receive Date: 20240511
  Receipt Date: 20240614
  Transmission Date: 20240715
  Serious: No
  Sender: FDA-Public Use
  Company Number: US-E2BLSMVVAL-CLI/USA/24/0006800

PATIENT
  Age: 1 Year
  Sex: Female
  Weight: 8.75 kg

DRUGS (3)
  1. SAPROPTERIN DIHYDROCHLORIDE [Suspect]
     Active Substance: SAPROPTERIN DIHYDROCHLORIDE
     Indication: Hyperphenylalaninaemia
     Route: 048
  2. SAPROPTERIN DIHYDROCHLORIDE [Suspect]
     Active Substance: SAPROPTERIN DIHYDROCHLORIDE
     Indication: Hyperphenylalaninaemia
     Dosage: CRUSH AND MIX TWO 100 MG TABLETS INTO 5 ML OF WATER AND THEN GIVE 4.5 ML (180 MG) DAILY.
     Route: 048
  3. CEFDINIR [Concomitant]
     Active Substance: CEFDINIR
     Indication: Product used for unknown indication
     Dosage: 250 MG/5 ML

REACTIONS (3)
  - Decreased appetite [Not Recovered/Not Resolved]
  - Ear infection [Not Recovered/Not Resolved]
  - Extra dose administered [Unknown]
